FAERS Safety Report 11292638 (Version 1)
Quarter: 2015Q3

REPORT INFORMATION
  Report Type: Spontaneous
  Country: US (occurrence: US)
  Receive Date: 20150722
  Receipt Date: 20150722
  Transmission Date: 20151125
  Serious: Yes (Other)
  Sender: FDA-Public Use
  Company Number: PHEH2015US013896

PATIENT
  Age: 60 Year
  Sex: Male

DRUGS (1)
  1. TASIGNA [Suspect]
     Active Substance: NILOTINIB
     Indication: CHRONIC MYELOID LEUKAEMIA
     Dosage: 600 MG, (IN THE MORNING AND EVENING)
     Route: 065
     Dates: start: 20150126

REACTIONS (2)
  - Papilloedema [Recovering/Resolving]
  - Periorbital oedema [Unknown]

NARRATIVE: CASE EVENT DATE: 201501
